FAERS Safety Report 11883410 (Version 3)
Quarter: 2016Q2

REPORT INFORMATION
  Report Type: Spontaneous
  Country: US (occurrence: US)
  Receive Date: 20151231
  Receipt Date: 20160407
  Transmission Date: 20160815
  Serious: Yes (Other)
  Sender: FDA-Public Use
  Company Number: US-UNITED THERAPEUTICS-UNT-2015-016405

PATIENT
  Age: 76 Year
  Sex: Female

DRUGS (23)
  1. ZYRTEC [Concomitant]
     Active Substance: CETIRIZINE HYDROCHLORIDE
     Indication: PRODUCT USED FOR UNKNOWN INDICATION
     Route: 048
  2. ASPIRIN                            /00002701/ [Concomitant]
     Active Substance: ASPIRIN
     Indication: PRODUCT USED FOR UNKNOWN INDICATION
     Route: 048
  3. IPRATROPIUM/ALBUTEROL [Concomitant]
     Active Substance: ALBUTEROL\IPRATROPIUM
     Indication: INFECTIVE EXACERBATION OF CHRONIC OBSTRUCTIVE AIRWAYS DISEASE
     Dosage: 3 ML, QID
     Dates: start: 20150720
  4. COMBIVENT [Concomitant]
     Active Substance: ALBUTEROL SULFATE\IPRATROPIUM BROMIDE
     Indication: PRODUCT USED FOR UNKNOWN INDICATION
  5. NASONEX [Concomitant]
     Active Substance: MOMETASONE FUROATE
     Indication: PRODUCT USED FOR UNKNOWN INDICATION
     Route: 045
  6. LORTAB [Concomitant]
     Active Substance: ACETAMINOPHEN\HYDROCODONE BITARTRATE
     Indication: PRODUCT USED FOR UNKNOWN INDICATION
     Route: 048
  7. LEVAQUIN [Concomitant]
     Active Substance: LEVOFLOXACIN
     Indication: BRONCHITIS CHRONIC
     Dosage: 250 MG, QD
     Route: 048
     Dates: start: 20130524, end: 20160119
  8. CATAPRES-TTS [Concomitant]
     Active Substance: CLONIDINE
     Indication: PRODUCT USED FOR UNKNOWN INDICATION
     Route: 062
  9. CARDURA [Concomitant]
     Active Substance: DOXAZOSIN MESYLATE
     Indication: PRODUCT USED FOR UNKNOWN INDICATION
     Dosage: UNK
     Route: 048
  10. GLYCOPYRROLATE                     /00196201/ [Concomitant]
     Active Substance: GLYCOPYRRONIUM
     Indication: BRONCHITIS CHRONIC
     Dosage: 2 MG, QD
     Route: 048
     Dates: start: 20140827
  11. HYDRALAZINE HYDROCHLORIDE. [Concomitant]
     Active Substance: HYDRALAZINE HYDROCHLORIDE
     Indication: PRODUCT USED FOR UNKNOWN INDICATION
     Dosage: UNK
     Route: 048
  12. SYNTHROID [Concomitant]
     Active Substance: LEVOTHYROXINE SODIUM
     Indication: PRODUCT USED FOR UNKNOWN INDICATION
     Route: 048
  13. SINGULAIR [Concomitant]
     Active Substance: MONTELUKAST SODIUM
     Indication: ASTHMA
     Dosage: 10 MG, QD
     Route: 048
     Dates: start: 20121214, end: 20160119
  14. ORENITRAM [Suspect]
     Active Substance: TREPROSTINIL
     Indication: PULMONARY ARTERIAL HYPERTENSION
     Dosage: 0.25 MG, BID
     Route: 048
     Dates: start: 20151203, end: 20160106
  15. LASIX [Concomitant]
     Active Substance: FUROSEMIDE
     Indication: PRODUCT USED FOR UNKNOWN INDICATION
     Route: 048
  16. DUONEB [Concomitant]
     Active Substance: ALBUTEROL SULFATE\IPRATROPIUM BROMIDE
     Indication: BRONCHITIS CHRONIC
     Dosage: UNK, TID (AFTER MEALS)
     Dates: start: 20140528, end: 20160119
  17. CRESTOR [Concomitant]
     Active Substance: ROSUVASTATIN CALCIUM
     Indication: PRODUCT USED FOR UNKNOWN INDICATION
     Route: 048
  18. LEVAQUIN [Concomitant]
     Active Substance: LEVOFLOXACIN
     Indication: INFECTIVE EXACERBATION OF CHRONIC OBSTRUCTIVE AIRWAYS DISEASE
     Dosage: 250 MG, QOD
     Dates: start: 20140117
  19. PHOSLO [Concomitant]
     Active Substance: CALCIUM ACETATE
     Indication: PRODUCT USED FOR UNKNOWN INDICATION
     Route: 048
  20. NEXIUM [Concomitant]
     Active Substance: ESOMEPRAZOLE MAGNESIUM
     Indication: PRODUCT USED FOR UNKNOWN INDICATION
     Route: 048
  21. ADVAIR DISCUS [Concomitant]
     Indication: PRODUCT USED FOR UNKNOWN INDICATION
  22. GLIMEPIRIDE. [Concomitant]
     Active Substance: GLIMEPIRIDE
     Indication: PRODUCT USED FOR UNKNOWN INDICATION
     Route: 048
  23. LYRICA [Concomitant]
     Active Substance: PREGABALIN
     Indication: PRODUCT USED FOR UNKNOWN INDICATION
     Route: 048

REACTIONS (3)
  - Syncope [Recovered/Resolved]
  - Hypotension [Unknown]
  - Mental status changes [Unknown]

NARRATIVE: CASE EVENT DATE: 20151219
